FAERS Safety Report 6771578-8 (Version None)
Quarter: 2010Q2

REPORT INFORMATION
  Report Type: 
  Country: None (occurrence: None)
  Receive Date: 20100616
  Receipt Date: 20100602
  Transmission Date: 20101027
  Serious: Yes (Other)
  Sender: FDA-Public Use
  Company Number: PHHY2010DE32341

PATIENT
  Age: 69 Year
  Sex: Female

DRUGS (7)
  1. EXFORGE HCT [Suspect]
     Dosage: 1 DF, QD
     Route: 048
     Dates: start: 20100505, end: 20100506
  2. EXFORGE [Interacting]
     Dosage: 1 DF, ONCE DAILY
     Route: 048
     Dates: start: 20100507
  3. EXFORGE [Interacting]
     Dosage: 80/5
  4. BROMAZEPAM [Interacting]
  5. ESTRADERM [Concomitant]
  6. FENTANYL [Concomitant]
  7. VITAMIN D [Concomitant]

REACTIONS (11)
  - AORTIC VALVE INCOMPETENCE [None]
  - BLOOD PRESSURE DIASTOLIC DECREASED [None]
  - CYANOSIS [None]
  - DIARRHOEA [None]
  - DIZZINESS [None]
  - DRUG EFFECT INCREASED [None]
  - DRUG INTERACTION [None]
  - GOUT [None]
  - JOINT SWELLING [None]
  - MENIERE'S DISEASE [None]
  - PAIN IN EXTREMITY [None]
